FAERS Safety Report 20814788 (Version 1)
Quarter: 2022Q2

REPORT INFORMATION
  Report Type: Spontaneous
  Country: CL (occurrence: CL)
  Receive Date: 20220511
  Receipt Date: 20220511
  Transmission Date: 20220721
  Serious: Yes (Other)
  Sender: FDA-Public Use
  Company Number: CL-BAYER-2022P002215

PATIENT
  Age: 45 Year
  Sex: Female

DRUGS (1)
  1. ULTRAVIST [Suspect]
     Active Substance: IOPROMIDE
     Indication: Computerised tomogram abdomen
     Dosage: 90 ML
     Route: 042
     Dates: start: 20220406

REACTIONS (6)
  - Nausea [None]
  - Respiratory distress [None]
  - Dyspnoea [None]
  - Cough [None]
  - Pruritus [None]
  - Urinary tract infection [None]

NARRATIVE: CASE EVENT DATE: 20220406
